FAERS Safety Report 21996802 (Version 1)
Quarter: 2023Q1

REPORT INFORMATION
  Report Type: Report from Study
  Country: IT (occurrence: IT)
  Receive Date: 20230215
  Receipt Date: 20230215
  Transmission Date: 20230418
  Serious: No
  Sender: FDA-Public Use
  Company Number: IT-KARYOPHARM-2023KPT000576

PATIENT
  Age: 78 Year
  Sex: Female

DRUGS (5)
  1. SELINEXOR [Suspect]
     Active Substance: SELINEXOR
     Indication: Endometrial cancer
     Dosage: UNK
     Dates: start: 20220801, end: 20221011
  2. AMLODIPINE [Concomitant]
     Active Substance: AMLODIPINE BESYLATE
     Dosage: 5 MG
  3. SOTALOL [Concomitant]
     Active Substance: SOTALOL
     Dosage: 80 MG
  4. LEVOTHYROXINE [Concomitant]
     Active Substance: LEVOTHYROXINE
     Dosage: 75 UG
  5. APIXABAN [Concomitant]
     Active Substance: APIXABAN
     Dosage: 5 MG

REACTIONS (1)
  - Endometrial cancer [Unknown]

NARRATIVE: CASE EVENT DATE: 20221011
